FAERS Safety Report 7078320-4 (Version None)
Quarter: 2010Q4

REPORT INFORMATION
  Report Type: 
  Country: None (occurrence: None)
  Receive Date: 20101102
  Receipt Date: 20101014
  Transmission Date: 20110411
  Serious: Yes (Hospitalization, Other)
  Sender: FDA-Public Use
  Company Number: US-BAYER-200940146NA

PATIENT
  Age: 21 Year
  Sex: Female
  Weight: 84 kg

DRUGS (4)
  1. YAZ [Suspect]
     Indication: PRODUCT USED FOR UNKNOWN INDICATION
     Route: 048
  2. YASMIN [Suspect]
     Indication: CONTRACEPTION
     Route: 048
     Dates: start: 20080101, end: 20090101
  3. OCELLA [Suspect]
     Indication: CONTRACEPTION
     Route: 048
     Dates: start: 20080101, end: 20090101
  4. ASCORBIC ACID [Concomitant]
     Dates: start: 20070101, end: 20090101

REACTIONS (4)
  - CHOLECYSTECTOMY [None]
  - DEEP VEIN THROMBOSIS [None]
  - PULMONARY EMBOLISM [None]
  - THROMBOSIS [None]
